FAERS Safety Report 17052666 (Version 1)
Quarter: 2019Q4

REPORT INFORMATION
  Report Type: Spontaneous
  Country: CA (occurrence: CA)
  Receive Date: 20191120
  Receipt Date: 20191120
  Transmission Date: 20200122
  Serious: Yes (Other)
  Sender: FDA-Public Use
  Company Number: CA-PFIZER INC-2019497697

PATIENT
  Age: 37 Year
  Sex: Female

DRUGS (3)
  1. PACLITAXEL. [Suspect]
     Active Substance: PACLITAXEL
     Indication: BREAST CANCER FEMALE
  2. LEVOTHYROXINE. [Concomitant]
     Active Substance: LEVOTHYROXINE
     Dosage: UNK
  3. PACLITAXEL. [Suspect]
     Active Substance: PACLITAXEL
     Indication: CHEMOTHERAPY
     Dosage: 342 MG, EVERY 3 WEEKS
     Route: 042

REACTIONS (5)
  - Flushing [Recovered/Resolved]
  - Vomiting [Recovered/Resolved]
  - Immediate post-injection reaction [Recovered/Resolved]
  - Oxygen saturation abnormal [Recovered/Resolved]
  - Chest discomfort [Recovered/Resolved]
